FAERS Safety Report 12494796 (Version 1)
Quarter: 2016Q2

REPORT INFORMATION
  Report Type: Spontaneous
  Country: US (occurrence: US)
  Receive Date: 20160624
  Receipt Date: 20160624
  Transmission Date: 20160815
  Serious: No
  Sender: FDA-Public Use
  Company Number: US-LEO PHARMA-242584

PATIENT
  Sex: Male

DRUGS (2)
  1. PICATO [Suspect]
     Active Substance: INGENOL MEBUTATE
     Indication: ACTINIC KERATOSIS
     Route: 061
  2. PICATO [Suspect]
     Active Substance: INGENOL MEBUTATE
     Indication: ACTINIC KERATOSIS
     Route: 061

REACTIONS (8)
  - Application site dryness [Not Recovered/Not Resolved]
  - Application site erythema [Not Recovered/Not Resolved]
  - Application site swelling [Not Recovered/Not Resolved]
  - Application site discolouration [Not Recovered/Not Resolved]
  - Application site pruritus [Not Recovered/Not Resolved]
  - Application site irritation [Not Recovered/Not Resolved]
  - Application site scab [Recovered/Resolved]
  - Drug administered at inappropriate site [Unknown]
